FAERS Safety Report 12850785 (Version 1)
Quarter: 2016Q4

REPORT INFORMATION
  Report Type: Spontaneous
  Country: US (occurrence: US)
  Receive Date: 20161014
  Receipt Date: 20161014
  Transmission Date: 20170207
  Serious: No
  Sender: FDA-Public Use
  Company Number: US-ALLERGAN-1655453US

PATIENT
  Sex: Female

DRUGS (3)
  1. AZELEX [Suspect]
     Active Substance: AZELAIC ACID
     Indication: ACNE
     Dosage: UNK, BID
     Route: 061
     Dates: start: 2001
  2. AZELEX [Suspect]
     Active Substance: AZELAIC ACID
     Indication: ROSACEA
  3. CLINDAMYCIN. [Concomitant]
     Active Substance: CLINDAMYCIN
     Indication: PRODUCT USED FOR UNKNOWN INDICATION
     Dosage: UNK UNK, UNKNOWN
     Route: 061

REACTIONS (3)
  - Drug ineffective for unapproved indication [Unknown]
  - Off label use [Unknown]
  - Drug ineffective [Unknown]
